FAERS Safety Report 8400189-3 (Version None)
Quarter: 2012Q2

REPORT INFORMATION
  Report Type: 
  Country: None (occurrence: None)
  Receive Date: 20120531
  Receipt Date: 20120522
  Transmission Date: 20120825
  Serious: Yes (Hospitalization, Other)
  Sender: FDA-Public Use
  Company Number: US-CELGENEUS-163-50794-12052768

PATIENT
  Age: 52 Year
  Sex: Male

DRUGS (13)
  1. CLOFARABINE [Suspect]
  2. IDARUBICIN HCL [Suspect]
  3. FLUCONAZOLE [Concomitant]
     Indication: PROPHYLAXIS
     Route: 065
  4. IDARUBICIN HCL [Suspect]
     Indication: MYELODYSPLASTIC SYNDROME
     Dosage: 6 MILLIGRAM/SQ. METER
     Route: 065
  5. CYTARABINE [Suspect]
  6. CIPROFLOXACIN [Concomitant]
     Indication: PROPHYLAXIS
     Route: 065
  7. VIDAZA [Suspect]
     Indication: MYELODYSPLASTIC SYNDROME
     Route: 065
  8. CYTARABINE [Suspect]
     Indication: MYELODYSPLASTIC SYNDROME
     Dosage: 6 G/M2
     Route: 065
  9. VIDAZA [Suspect]
  10. CLOFARABINE [Suspect]
     Indication: MYELODYSPLASTIC SYNDROME
     Dosage: 22.5 MILLIGRAM/SQ. METER
     Route: 041
  11. ACYCLOVIR [Concomitant]
     Indication: PROPHYLAXIS
     Route: 065
  12. METFORMIN HCL [Concomitant]
     Route: 065
  13. INSULIN [Concomitant]
     Route: 065

REACTIONS (10)
  - HAEMOPTYSIS [None]
  - NEUTROPENIA [None]
  - HYPOKALAEMIA [None]
  - PNEUMONIA CYTOMEGALOVIRAL [None]
  - PULMONARY HAEMORRHAGE [None]
  - ZYGOMYCOSIS [None]
  - ACUTE MYELOID LEUKAEMIA [None]
  - MYELODYSPLASTIC SYNDROME TRANSFORMATION [None]
  - THROMBOCYTOPENIA [None]
  - LOCAL SWELLING [None]
